FAERS Safety Report 8888514 (Version 22)
Quarter: 2017Q1

REPORT INFORMATION
  Report Type: Report from Study
  Country: LB (occurrence: LB)
  Receive Date: 20121106
  Receipt Date: 20170224
  Transmission Date: 20170429
  Serious: Yes (Life-Threatening, Hospitalization, Other)
  Sender: FDA-Public Use
  Company Number: PHHY2012LB067866

PATIENT
  Age: 37 Year
  Sex: Female

DRUGS (10)
  1. FLUNAZOL [Concomitant]
     Indication: PRODUCT USED FOR UNKNOWN INDICATION
     Dosage: 1 DF, QW
     Route: 065
     Dates: start: 201210
  2. EURO-FER [Concomitant]
     Indication: PRODUCT USED FOR UNKNOWN INDICATION
     Dosage: 1 DF, QD
     Route: 048
     Dates: start: 201602
  3. TASIGNA [Suspect]
     Active Substance: NILOTINIB
     Indication: CHRONIC MYELOID LEUKAEMIA
     Dosage: 800 MG, QD
     Route: 048
     Dates: start: 20120726
  4. PARIET [Concomitant]
     Active Substance: RABEPRAZOLE SODIUM
     Indication: PRODUCT USED FOR UNKNOWN INDICATION
     Dosage: 1 DF, QD
     Route: 048
  5. MOSAR PLUS [Concomitant]
     Indication: PRODUCT USED FOR UNKNOWN INDICATION
     Dosage: 1 DF, Q8H
     Route: 048
     Dates: start: 201210
  6. CIPRALEX [Concomitant]
     Active Substance: ESCITALOPRAM OXALATE
     Indication: PRODUCT USED FOR UNKNOWN INDICATION
     Dosage: 1 DF, QD
     Route: 048
     Dates: start: 20140301
  7. METEOSPASM XY [Concomitant]
     Indication: PRODUCT USED FOR UNKNOWN INDICATION
     Dosage: 1 DF, Q8H
     Route: 048
  8. TAVANIC [Concomitant]
     Active Substance: LEVOFLOXACIN
     Indication: PRODUCT USED FOR UNKNOWN INDICATION
     Dosage: 1 DF, QD
     Route: 048
  9. AMOCLAN [Concomitant]
     Active Substance: AMOXICILLIN\CLAVULANIC ACID
     Indication: PRODUCT USED FOR UNKNOWN INDICATION
     Dosage: 1 DF, Q12H
     Route: 048
  10. ORAVIL [Concomitant]
     Indication: PRODUCT USED FOR UNKNOWN INDICATION
     Dosage: UNK UNK, TIW
     Route: 048
     Dates: start: 201602

REACTIONS (34)
  - Intervertebral disc protrusion [Unknown]
  - Hypotension [Recovering/Resolving]
  - Suicide attempt [Unknown]
  - Intervertebral disc disorder [Unknown]
  - Alopecia [Not Recovered/Not Resolved]
  - Ear pain [Unknown]
  - Neck pain [Not Recovered/Not Resolved]
  - Blood iron decreased [Not Recovered/Not Resolved]
  - Headache [Not Recovered/Not Resolved]
  - Pyrexia [Recovering/Resolving]
  - Breast fibroma [Unknown]
  - Dyspnoea [Unknown]
  - Anxiety [Unknown]
  - Pain [Unknown]
  - Back pain [Recovered/Resolved]
  - Pain in extremity [Not Recovered/Not Resolved]
  - Hypoglycaemia [Recovering/Resolving]
  - Influenza [Recovered/Resolved]
  - Renal pain [Unknown]
  - Vitamin D decreased [Not Recovered/Not Resolved]
  - Pruritus [Recovering/Resolving]
  - Anaemia [Recovering/Resolving]
  - Renal colic [Recovering/Resolving]
  - Nervousness [Unknown]
  - Rash [Recovering/Resolving]
  - Skin burning sensation [Recovering/Resolving]
  - Dizziness [Not Recovered/Not Resolved]
  - Dysuria [Unknown]
  - Oropharyngeal pain [Unknown]
  - Depression [Recovered/Resolved]
  - Abdominal pain upper [Recovering/Resolving]
  - Fatigue [Not Recovered/Not Resolved]
  - Abdominal distension [Not Recovered/Not Resolved]
  - Decreased appetite [Not Recovered/Not Resolved]

NARRATIVE: CASE EVENT DATE: 20120726
